FAERS Safety Report 4339330-0 (Version None)
Quarter: 2004Q2

REPORT INFORMATION
  Report Type: 
  Country: None (occurrence: None)
  Receive Date: 20040415
  Receipt Date: 20040407
  Transmission Date: 20050107
  Serious: Yes (Hospitalization)
  Sender: FDA-Public Use
  Company Number: 200411446FR

PATIENT
  Age: 28 Year
  Sex: Female
  Weight: 45 kg

DRUGS (3)
  1. KETEK [Suspect]
     Route: 048
     Dates: start: 20031128, end: 20031207
  2. IMUREL [Suspect]
     Indication: CROHN'S DISEASE
     Route: 048
     Dates: start: 20021015, end: 20040112
  3. ROWASA [Concomitant]
     Indication: CROHN'S DISEASE
     Route: 048
     Dates: start: 20021015

REACTIONS (8)
  - APLASTIC ANAEMIA [None]
  - BONE MARROW DEPRESSION [None]
  - BONE MARROW TOXICITY [None]
  - CHOLESTASIS [None]
  - CYTOLYTIC HEPATITIS [None]
  - DRUG INTERACTION [None]
  - HAEMOLYSIS [None]
  - HEPATOCELLULAR DAMAGE [None]
